FAERS Safety Report 9856986 (Version 1)
Quarter: 2014Q1

REPORT INFORMATION
  Report Type: Spontaneous
  Country: US (occurrence: US)
  Receive Date: 20140130
  Receipt Date: 20140130
  Transmission Date: 20141002
  Serious: No
  Sender: FDA-Public Use
  Company Number: US-009507513-1401USA012685

PATIENT
  Age: 26 Year
  Sex: Female
  Weight: 64.5 kg

DRUGS (1)
  1. IMPLANON [Suspect]
     Indication: CONTRACEPTION
     Dosage: 3 YEAR IMPLANT/IMPLANT IN LEFT ARM
     Route: 059
     Dates: start: 20110608

REACTIONS (1)
  - Menorrhagia [Unknown]
